FAERS Safety Report 24817006 (Version 1)
Quarter: 2025Q1

REPORT INFORMATION
  Report Type: Spontaneous
  Country: US (occurrence: US)
  Receive Date: 20250108
  Receipt Date: 20250108
  Transmission Date: 20250409
  Serious: Yes (Other)
  Sender: NOVO NORDISK
  Company Number: US-NOVOPROD-1345265

PATIENT
  Sex: Female

DRUGS (2)
  1. FIASP [Suspect]
     Active Substance: INSULIN ASPART
     Indication: Type 2 diabetes mellitus
     Route: 058
  2. TRESIBA [Suspect]
     Active Substance: INSULIN DEGLUDEC
     Indication: Product used for unknown indication
     Route: 058

REACTIONS (12)
  - Myocardial infarction [Unknown]
  - Hiccups [Unknown]
  - Cough [Unknown]
  - Sleep apnoea syndrome [Unknown]
  - Diabetic wound [Unknown]
  - Unevaluable event [Unknown]
  - Pain [Unknown]
  - Teeth brittle [Unknown]
  - Wound haemorrhage [Recovering/Resolving]
  - Rash [Unknown]
  - Injection site pain [Unknown]
  - Blood glucose increased [Unknown]

NARRATIVE: CASE EVENT DATE: 20190101
